FAERS Safety Report 21789984 (Version 1)
Quarter: 2022Q4

REPORT INFORMATION
  Report Type: Report from Study
  Country: US (occurrence: US)
  Receive Date: 20221228
  Receipt Date: 20221228
  Transmission Date: 20230112
  Serious: Yes (Hospitalization)
  Sender: FDA-Public Use
  Company Number: US-PFIZER INC-202201387919

PATIENT
  Age: 75 Year
  Sex: Male

DRUGS (1)
  1. VYNDAQEL [Suspect]
     Active Substance: TAFAMIDIS MEGLUMINE
     Dosage: 4 DF, DAILY (4 CAPSULES DAILY ORAL)
     Route: 048

REACTIONS (4)
  - Illness [Unknown]
  - Swelling [Unknown]
  - Dyspnoea [Unknown]
  - Fluid retention [Recovering/Resolving]
